FAERS Safety Report 17316175 (Version 2)
Quarter: 2020Q1

REPORT INFORMATION
  Report Type: Spontaneous
  Country: US (occurrence: US)
  Receive Date: 20200124
  Receipt Date: 20200217
  Transmission Date: 20200409
  Serious: Yes (Hospitalization)
  Sender: FDA-Public Use
  Company Number: US-PFIZER INC-2020029764

PATIENT
  Sex: Female

DRUGS (1)
  1. LIPITOR [Suspect]
     Active Substance: ATORVASTATIN CALCIUM
     Dosage: UNK (SPLIT THE 80MG TABLET TO GET A 40MG)

REACTIONS (5)
  - Laryngitis [Recovering/Resolving]
  - Off label use [Unknown]
  - Dyspnoea [Recovering/Resolving]
  - Wrong technique in product usage process [Unknown]
  - Heart rate increased [Recovering/Resolving]
